FAERS Safety Report 9335248 (Version 1)
Quarter: 2013Q2

REPORT INFORMATION
  Report Type: Spontaneous
  Country: JP (occurrence: JP)
  Receive Date: 20130606
  Receipt Date: 20130606
  Transmission Date: 20140414
  Serious: Yes (Other)
  Sender: FDA-Public Use
  Company Number: JP-PFIZER INC-2013168704

PATIENT
  Age: 66 Year
  Sex: Male

DRUGS (2)
  1. LYRICA [Suspect]
     Indication: PARAESTHESIA
     Dosage: 75 MG DAILY
     Route: 048
     Dates: start: 201304
  2. LYRICA [Suspect]
     Dosage: 225 MG DAILY
     Route: 048
     Dates: end: 20130513

REACTIONS (7)
  - Cardiac failure [Unknown]
  - Balance disorder [Unknown]
  - Road traffic accident [Unknown]
  - Dyspnoea [Unknown]
  - Chest pain [Unknown]
  - Oedema peripheral [Not Recovered/Not Resolved]
  - Chromaturia [Unknown]
